FAERS Safety Report 12726997 (Version 2)
Quarter: 2016Q4

REPORT INFORMATION
  Report Type: Spontaneous
  Country: GB (occurrence: GB)
  Receive Date: 20160909
  Receipt Date: 20161027
  Transmission Date: 20170207
  Serious: Yes (Life-Threatening, Hospitalization, Other)
  Sender: FDA-Public Use
  Company Number: GB-BRISTOL-MYERS SQUIBB COMPANY-BMS-2016-074145

PATIENT
  Age: 64 Year
  Sex: Female

DRUGS (1)
  1. APIXABAN [Suspect]
     Active Substance: APIXABAN
     Indication: DEEP VEIN THROMBOSIS
     Dosage: 5 MG, BID
     Route: 065
     Dates: start: 201512, end: 20160210

REACTIONS (5)
  - Cerebral infarction [Not Recovered/Not Resolved]
  - Pneumonia aspiration [Unknown]
  - Craniotomy [Unknown]
  - Subarachnoid haemorrhage [Unknown]
  - Basal ganglia haemorrhage [Unknown]

NARRATIVE: CASE EVENT DATE: 20160210
